FAERS Safety Report 6730484-5 (Version None)
Quarter: 2010Q2

REPORT INFORMATION
  Report Type: 
  Country: None (occurrence: None)
  Receive Date: 20100518
  Receipt Date: 20100511
  Transmission Date: 20101027
  Serious: Yes (Death)
  Sender: FDA-Public Use
  Company Number: CO-ROCHE-702225

PATIENT
  Sex: Female

DRUGS (2)
  1. XELODA [Suspect]
     Indication: COLORECTAL CANCER
     Dosage: FERQUENCY: QD.
     Route: 048
     Dates: start: 20090324, end: 20090901
  2. CLONAZEPAM [Concomitant]
     Dosage: FREQUENCY: QD.
     Route: 048
     Dates: end: 20100410

REACTIONS (3)
  - CARDIOPULMONARY FAILURE [None]
  - DISEASE PROGRESSION [None]
  - DYSPNOEA [None]
